FAERS Safety Report 23433662 (Version 3)
Quarter: 2024Q1

REPORT INFORMATION
  Report Type: Spontaneous
  Country: US (occurrence: US)
  Receive Date: 20240123
  Receipt Date: 20240129
  Transmission Date: 20240410
  Serious: No
  Sender: FDA-Public Use
  Company Number: US-PFIZER INC-202400019546

PATIENT
  Age: 91 Year
  Sex: Male

DRUGS (2)
  1. VYNDAQEL [Suspect]
     Active Substance: TAFAMIDIS MEGLUMINE
     Indication: Cardiac amyloidosis
     Dosage: 4 PILLS, TAKES AT THE SAME TIMES EVERY DAY
  2. VYNDAMAX [Suspect]
     Active Substance: TAFAMIDIS
     Dosage: ONE PER DAY

REACTIONS (7)
  - Product dispensing error [Unknown]
  - Eating disorder [Unknown]
  - Gastrointestinal disorder [Unknown]
  - Malaise [Unknown]
  - Dyspepsia [Unknown]
  - Product use complaint [Unknown]
  - Product size issue [Unknown]
